FAERS Safety Report 17870830 (Version 1)
Quarter: 2020Q2

REPORT INFORMATION
  Report Type: Spontaneous
  Country: US (occurrence: US)
  Receive Date: 20200605
  Receipt Date: 20200605
  Transmission Date: 20200714
  Serious: Yes (Death)
  Sender: FDA-Public Use
  Company Number: None

PATIENT
  Age: 69 Year
  Sex: Male
  Weight: 299 kg

DRUGS (2)
  1. REMDESIVIR (EUA) (REMDESVIR (EUA)) [Suspect]
     Active Substance: REMDESIVIR
     Indication: COVID-19
     Route: 042
     Dates: start: 20200512, end: 20200519
  2. VANCOMYCIN (VANCOMYCIN HCL 1GM/VIL INJ) [Suspect]
     Active Substance: VANCOMYCIN HYDROCHLORIDE
     Dosage: ?          OTHER STRENGTH:1 GM/VIL;?
     Route: 042
     Dates: start: 20200511, end: 20200520

REACTIONS (16)
  - Acute kidney injury [None]
  - Right ventricular dilatation [None]
  - Sinus bradycardia [None]
  - Nodal rhythm [None]
  - Respiratory failure [None]
  - Hypotension [None]
  - Right ventricular failure [None]
  - Miosis [None]
  - Cardiac arrest [None]
  - Pulmonary fibrosis [None]
  - Unresponsive to stimuli [None]
  - Pulmonary arterial pressure increased [None]
  - Pulse absent [None]
  - Acidosis [None]
  - Condition aggravated [None]
  - Areflexia [None]

NARRATIVE: CASE EVENT DATE: 20200516
